FAERS Safety Report 7983350-1 (Version None)
Quarter: 2011Q4

REPORT INFORMATION
  Report Type: 
  Country: None (occurrence: None)
  Receive Date: 20111215
  Receipt Date: 20111209
  Transmission Date: 20120403
  Serious: Yes (Hospitalization, Other)
  Sender: FDA-Public Use
  Company Number: US-CELGENEUS-163-21880-11102458

PATIENT
  Sex: Female
  Weight: 64.014 kg

DRUGS (10)
  1. OXYCODONE HCL [Concomitant]
     Indication: PAIN
     Dosage: 5 MILLIGRAM
     Route: 065
  2. XANAX [Concomitant]
     Indication: ANXIETY
     Route: 065
  3. OXYCONTIN [Concomitant]
     Indication: PAIN
     Dosage: 10 MILLIGRAM
     Route: 065
  4. METOPROLOL TARTRATE [Concomitant]
     Route: 065
  5. ASPIRIN [Concomitant]
     Dosage: 81 MILLIGRAM
     Route: 065
  6. VELCADE [Concomitant]
     Route: 065
     Dates: start: 20110613
  7. REVLIMID [Suspect]
     Indication: MULTIPLE MYELOMA
     Dosage: 25 MILLIGRAM
     Route: 048
     Dates: start: 20110801
  8. DEXAMETHASONE [Concomitant]
     Route: 065
  9. VELCADE [Concomitant]
     Route: 065
     Dates: start: 20100712
  10. REVLIMID [Suspect]
     Dosage: 15 MILLIGRAM
     Route: 048
     Dates: start: 20110906, end: 20111116

REACTIONS (8)
  - URINARY INCONTINENCE [None]
  - INSOMNIA [None]
  - PAIN IN EXTREMITY [None]
  - BRUXISM [None]
  - CEREBROVASCULAR ACCIDENT [None]
  - DYSPNOEA [None]
  - PAIN [None]
  - BLINDNESS [None]
